FAERS Safety Report 4410797-2 (Version None)
Quarter: 2004Q3

REPORT INFORMATION
  Report Type: 
  Country: None (occurrence: None)
  Receive Date: 20040728
  Receipt Date: 20040728
  Transmission Date: 20050211
  Serious: Yes (Hospitalization)
  Sender: FDA-Public Use
  Company Number: None

PATIENT
  Age: 65 Year
  Sex: Male
  Weight: 73.6 kg

DRUGS (2)
  1. PACLITAXEL [Suspect]
     Indication: NON-SMALL CELL LUNG CANCER
     Dosage: 50MG/M2 WEEKLY INTRAVENOUS
     Route: 042
     Dates: start: 20040719, end: 20040727
  2. CARBOPLATIN [Suspect]
     Indication: NON-SMALL CELL LUNG CANCER
     Dosage: AUC 2 WEEKLY INTRAVENOUS
     Route: 042
     Dates: start: 20040719, end: 20040727

REACTIONS (2)
  - BACK PAIN [None]
  - HAEMATURIA [None]
